FAERS Safety Report 4937914-X (Version None)
Quarter: 2006Q1

REPORT INFORMATION
  Report Type: 
  Country: None (occurrence: None)
  Receive Date: 20060309
  Receipt Date: 20050429
  Transmission Date: 20060701
  Serious: No
  Sender: FDA-Public Use
  Company Number: US-BRISTOL-MYERS SQUIBB COMPANY-12956678

PATIENT
  Age: 47 Year
  Sex: Female

DRUGS (4)
  1. MONISTAT-1 VAG OINT 6.5% [Suspect]
     Indication: VULVOVAGINAL MYCOTIC INFECTION
     Route: 067
     Dates: start: 20050427, end: 20050427
  2. MULTI-VITAMIN [Concomitant]
  3. LEXAPRO [Concomitant]
  4. TOPROL [Concomitant]

REACTIONS (2)
  - VAGINAL BURNING SENSATION [None]
  - VULVAL OEDEMA [None]
